FAERS Safety Report 8282597-7 (Version None)
Quarter: 2012Q2

REPORT INFORMATION
  Report Type: 
  Country: None (occurrence: None)
  Receive Date: 20120410
  Receipt Date: 20120403
  Transmission Date: 20120825
  Serious: Yes (Other)
  Sender: FDA-Public Use
  Company Number: 2012HGS-003314

PATIENT
  Age: 45 Year
  Sex: Female
  Weight: 113.3993 kg

DRUGS (5)
  1. BENLYSTA [Suspect]
     Indication: SYSTEMIC LUPUS ERYTHEMATOSUS
     Dosage: 1 IN 28 D, INTRAVENOUS DRIP
     Route: 041
     Dates: start: 20120217
  2. PLAQUENIL [Concomitant]
  3. PREDNISONE TAB [Concomitant]
  4. CELEXA [Concomitant]
  5. ZOFRAN [Concomitant]

REACTIONS (5)
  - LOSS OF CONSCIOUSNESS [None]
  - DIARRHOEA [None]
  - MEMORY IMPAIRMENT [None]
  - HEADACHE [None]
  - VOMITING [None]
